FAERS Safety Report 4925234-9 (Version None)
Quarter: 2006Q1

REPORT INFORMATION
  Report Type: 
  Country: None (occurrence: None)
  Receive Date: 20060223
  Receipt Date: 20060223
  Transmission Date: 20060701
  Serious: Yes (Life-Threatening, Hospitalization, Other)
  Sender: FDA-Public Use
  Company Number: None

PATIENT
  Age: 47 Year
  Sex: Female
  Weight: 88.4514 kg

DRUGS (7)
  1. DESENFRIOL-D(CHLORPHENIRAMINE/PHENYPROPANOLAMINE/A TABLETS [Suspect]
     Indication: NASOPHARYNGITIS
     Dosage: ORAL
     Route: 048
  2. METABOLIFE 356 TABLETS [Suspect]
     Dosage: ORAL
     Route: 048
     Dates: start: 19970101
  3. XENADRINE (EPHEDRA) TABLETS [Suspect]
     Dosage: ORAL
     Route: 048
     Dates: start: 19990101
  4. PSEUDOEPHEDRINE HCL [Suspect]
     Dosage: ORAL
     Route: 048
  5. ROBITUSSIN-DM [Concomitant]
  6. NICOTINE [Concomitant]
  7. CAFFEINE [Concomitant]

REACTIONS (23)
  - ACTIVITIES OF DAILY LIVING IMPAIRED [None]
  - AMNESIA [None]
  - ANEURYSM [None]
  - BLOOD CHOLESTEROL INCREASED [None]
  - BLOOD GLUCOSE INCREASED [None]
  - CEREBROVASCULAR ACCIDENT [None]
  - DEPRESSION [None]
  - DIABETES MELLITUS [None]
  - DIABETIC NEUROPATHY [None]
  - DIZZINESS [None]
  - HEADACHE [None]
  - HYPOAESTHESIA [None]
  - IMPAIRED HEALING [None]
  - IMPAIRED WORK ABILITY [None]
  - LOSS OF CONSCIOUSNESS [None]
  - MARITAL PROBLEM [None]
  - MENTAL STATUS CHANGES [None]
  - OEDEMA PERIPHERAL [None]
  - PAIN IN EXTREMITY [None]
  - SKIN ULCER [None]
  - TREATMENT NONCOMPLIANCE [None]
  - VISION BLURRED [None]
  - WALKING AID USER [None]
